FAERS Safety Report 6534667-9 (Version None)
Quarter: 2009Q4

REPORT INFORMATION
  Report Type: 
  Country: None (occurrence: None)
  Receive Date: 20091228
  Receipt Date: 20090922
  Transmission Date: 20100525
  Serious: Yes (Other)
  Sender: FDA-Public Use
  Company Number: US-003460

PATIENT
  Age: 45 Year
  Sex: Male

DRUGS (2)
  1. MULTIHANCE [Suspect]
     Indication: NUCLEAR MAGNETIC RESONANCE IMAGING
     Dosage: 20 ML ONCE INTRAVENOUS
     Route: 042
     Dates: start: 20090922, end: 20090922
  2. ALLEGRA [Concomitant]

REACTIONS (1)
  - ANAPHYLACTOID REACTION [None]
